FAERS Safety Report 9366995 (Version 1)
Quarter: 2013Q2

REPORT INFORMATION
  Report Type: Report from Study
  Country: DE (occurrence: DE)
  Receive Date: 20130625
  Receipt Date: 20130625
  Transmission Date: 20140414
  Serious: Yes (Hospitalization)
  Sender: FDA-Public Use
  Company Number: DE-ALEXION-A201301445

PATIENT
  Age: 34 Year
  Sex: Male

DRUGS (6)
  1. ECULIZUMAB [Suspect]
     Indication: HAEMOLYTIC URAEMIC SYNDROME
     Dosage: 1200 MG, Q2W
     Route: 042
     Dates: start: 20120202, end: 20120607
  2. ECULIZUMAB [Suspect]
     Dosage: 300 MG, SINGLE
     Route: 042
     Dates: start: 20120621, end: 20120621
  3. ECULIZUMAB [Suspect]
     Dosage: 1200 MG, Q2W
     Route: 042
     Dates: start: 20120705, end: 20121220
  4. ECULIZUMAB [Suspect]
     Dosage: 1200 MG, Q2W
     Route: 042
     Dates: start: 20130117
  5. DIOVAN [Concomitant]
     Indication: HYPERTENSION
     Dosage: 160 MG, BID
     Route: 048
     Dates: start: 201212
  6. VIGANTOLETTEN [Concomitant]
     Indication: OSTEOPOROSIS
     Dosage: 1,000 IE QD
     Route: 048
     Dates: start: 20101207

REACTIONS (1)
  - Meningitis [Recovered/Resolved]
